FAERS Safety Report 8912871 (Version 2)
Quarter: 2013Q1

REPORT INFORMATION
  Report Type: Spontaneous
  Country: US (occurrence: US)
  Receive Date: 20121116
  Receipt Date: 20130228
  Transmission Date: 20140127
  Serious: Yes (Death, Hospitalization)
  Sender: FDA-Public Use
  Company Number: US-GLAXOSMITHKLINE-A0826669A

PATIENT
  Age: 79 Year
  Sex: Female

DRUGS (5)
  1. AVANDIA [Suspect]
     Indication: DIABETES MELLITUS
     Dosage: 8MG PER DAY
     Route: 048
     Dates: end: 200410
  2. INSULIN [Concomitant]
  3. LIPITOR [Concomitant]
  4. PRINIVIL [Concomitant]
  5. PREMARIN [Concomitant]

REACTIONS (3)
  - Death [Fatal]
  - Myocardial infarction [Unknown]
  - Cardiac failure congestive [Unknown]
